FAERS Safety Report 5621745-1 (Version None)
Quarter: 2008Q1

REPORT INFORMATION
  Report Type: 
  Country: None (occurrence: None)
  Receive Date: 20080211
  Receipt Date: 20080206
  Transmission Date: 20080703
  Serious: Yes (Death, Hospitalization)
  Sender: FDA-Public Use
  Company Number: PHBS2008SE01854

PATIENT
  Age: 81 Year
  Sex: Female

DRUGS (2)
  1. SANDIMMUNE [Suspect]
     Indication: DERMATITIS ATOPIC
     Dates: start: 20070531, end: 20070630
  2. ATARAX [Concomitant]

REACTIONS (14)
  - ABDOMINAL PAIN [None]
  - ANAEMIA HAEMOLYTIC AUTOIMMUNE [None]
  - BLOOD BILIRUBIN INCREASED [None]
  - BLOOD LACTATE DEHYDROGENASE INCREASED [None]
  - BLOOD PRESSURE DECREASED [None]
  - C-REACTIVE PROTEIN INCREASED [None]
  - CARDIAC MASSAGE [None]
  - FATIGUE [None]
  - HAEMATOCRIT DECREASED [None]
  - HAEMOGLOBIN DECREASED [None]
  - HODGKIN'S DISEASE [None]
  - HYPERVENTILATION [None]
  - NAUSEA [None]
  - RED BLOOD CELL SEDIMENTATION RATE INCREASED [None]
